FAERS Safety Report 16345172 (Version 1)
Quarter: 2019Q2

REPORT INFORMATION
  Report Type: Spontaneous
  Country: US (occurrence: US)
  Receive Date: 20190523
  Receipt Date: 20190523
  Transmission Date: 20190711
  Serious: No
  Sender: FDA-Public Use
  Company Number: US-ZYDUS-034673

PATIENT
  Age: 85 Year
  Sex: Female

DRUGS (4)
  1. DILTIAZEM. [Concomitant]
     Active Substance: DILTIAZEM
     Indication: ATRIAL FIBRILLATION
     Route: 065
  2. BUMETANIDE. [Suspect]
     Active Substance: BUMETANIDE
     Indication: CARDIAC FAILURE CONGESTIVE
     Route: 048
     Dates: start: 201811
  3. LEVOTHYROXINE. [Concomitant]
     Active Substance: LEVOTHYROXINE
     Indication: HYPOTHYROIDISM
     Dosage: 150 MCG FIVE DAYS A WEEK, 175 MCG TWO DAYS A WEEK
     Route: 065
  4. ATENOLOL. [Concomitant]
     Active Substance: ATENOLOL
     Indication: HYPERTENSION
     Route: 065

REACTIONS (5)
  - Nausea [Not Recovered/Not Resolved]
  - Drug ineffective [Not Recovered/Not Resolved]
  - Nervousness [Not Recovered/Not Resolved]
  - Dizziness [Not Recovered/Not Resolved]
  - Myalgia [Not Recovered/Not Resolved]

NARRATIVE: CASE EVENT DATE: 201811
